FAERS Safety Report 12888339 (Version 2)
Quarter: 2016Q4

REPORT INFORMATION
  Report Type: Spontaneous
  Country: US (occurrence: US)
  Receive Date: 20161027
  Receipt Date: 20161122
  Transmission Date: 20170207
  Serious: No
  Sender: FDA-Public Use
  Company Number: US-BEH-2016074678

PATIENT
  Sex: Female

DRUGS (1)
  1. HIZENTRA [Suspect]
     Active Substance: HUMAN IMMUNOGLOBULIN G
     Indication: PRODUCT USED FOR UNKNOWN INDICATION
     Route: 065

REACTIONS (10)
  - Malabsorption from administration site [Unknown]
  - Injection site bruising [Unknown]
  - Upper respiratory tract infection [Unknown]
  - Administration site extravasation [Unknown]
  - Administration site warmth [Unknown]
  - Ear pain [Unknown]
  - Blood blister [Unknown]
  - Tympanic membrane perforation [Unknown]
  - Injection site swelling [Unknown]
  - Skin discomfort [Unknown]

NARRATIVE: CASE EVENT DATE: 2016
